FAERS Safety Report 8034339-8 (Version None)
Quarter: 2012Q1

REPORT INFORMATION
  Report Type: 
  Country: None (occurrence: None)
  Receive Date: 20120110
  Receipt Date: 20120104
  Transmission Date: 20120608
  Serious: Yes (Other)
  Sender: FDA-Public Use
  Company Number: PHHY2012FR000935

PATIENT
  Age: 72 Year
  Sex: Male

DRUGS (4)
  1. ASPIRIN [Concomitant]
  2. FORADIL [Suspect]
     Indication: SILICOSIS
     Dosage: UNK
     Dates: start: 20120103
  3. PERMIXON [Concomitant]
  4. PRAZOSIN HCL [Concomitant]

REACTIONS (9)
  - RASH ERYTHEMATOUS [None]
  - LIP OEDEMA [None]
  - DYSPNOEA [None]
  - NAUSEA [None]
  - FEELING COLD [None]
  - OEDEMA PERIPHERAL [None]
  - URTICARIA [None]
  - INSOMNIA [None]
  - PRURITUS [None]
